FAERS Safety Report 8123379-6 (Version None)
Quarter: 2012Q1

REPORT INFORMATION
  Report Type: 
  Country: None (occurrence: None)
  Receive Date: 20120208
  Receipt Date: 20120207
  Transmission Date: 20120608
  Serious: No
  Sender: FDA-Public Use
  Company Number: US-PFIZER INC-2012033540

PATIENT
  Sex: Female
  Weight: 117.1 kg

DRUGS (3)
  1. ADVIL CONGESTION RELIEF [Suspect]
     Indication: HEADACHE
     Dosage: 200/10 MG, 1X/DAY
     Route: 048
     Dates: start: 20120205, end: 20120207
  2. ADVIL CONGESTION RELIEF [Suspect]
     Indication: SINUS HEADACHE
  3. ADVIL CONGESTION RELIEF [Suspect]
     Indication: NASAL CONGESTION

REACTIONS (1)
  - DRUG INEFFECTIVE [None]
